FAERS Safety Report 5631021-9 (Version None)
Quarter: 2008Q1

REPORT INFORMATION
  Report Type: 
  Country: None (occurrence: None)
  Receive Date: 20080219
  Receipt Date: 20080208
  Transmission Date: 20080703
  Serious: Yes (Other)
  Sender: FDA-Public Use
  Company Number: US-PFIZER INC-2007097258

PATIENT
  Sex: Female

DRUGS (1)
  1. CHANTIX [Suspect]

REACTIONS (5)
  - EYE SWELLING [None]
  - OEDEMA MOUTH [None]
  - SWOLLEN TONGUE [None]
  - TOOTH ABSCESS [None]
  - TOOTHACHE [None]
